FAERS Safety Report 16617126 (Version 2)
Quarter: 2019Q3

REPORT INFORMATION
  Report Type: Spontaneous
  Country: DE (occurrence: DE)
  Receive Date: 20190723
  Receipt Date: 20190820
  Transmission Date: 20191004
  Serious: Yes (Hospitalization)
  Sender: FDA-Public Use
  Company Number: DE-MYLANLABS-2019M1067710

PATIENT
  Age: 17 Year
  Sex: Male
  Weight: 67 kg

DRUGS (7)
  1. CIATYL                             /00075802/ [Concomitant]
     Active Substance: CLOPENTHIXOL HYDROCHLORIDE
     Dosage: 24 GTT DROPS, QD,DAILY DOSE: 24 GTT DROP(S) EVERY DAYS
     Route: 048
  2. QUETIAPINE. [Suspect]
     Active Substance: QUETIAPINE
     Indication: PRODUCT USED FOR UNKNOWN INDICATION
     Dosage: 200 MILLIGRAM
     Route: 048
     Dates: start: 20180715, end: 20180715
  3. RISPERIDONE. [Suspect]
     Active Substance: RISPERIDONE
     Indication: PRODUCT USED FOR UNKNOWN INDICATION
     Dosage: 3 MILLIGRAM
     Route: 048
     Dates: start: 20180715, end: 20180715
  4. BELLADONNA TINCTURE [Concomitant]
     Active Substance: BELLADONNA LEAF\HOMEOPATHICS
     Dosage: DAILY DOSE: 27 GTT DROP(S) EVERY DAYS
     Route: 048
  5. RISPERIDON [Concomitant]
     Active Substance: RISPERIDONE
     Dosage: DAILY DOSE: 3 MG MILLGRAM(S) EVERY DAYS
     Route: 048
  6. PIPAMPERON [Concomitant]
     Active Substance: PIPAMPERONE HYDROCHLORIDE
     Dosage: 120 MILLIGRAM, QD
     Route: 048
  7. ARIPIPRAZOLE. [Suspect]
     Active Substance: ARIPIPRAZOLE
     Indication: PRODUCT USED FOR UNKNOWN INDICATION
     Dosage: 5 MILLIGRAM
     Route: 048
     Dates: start: 20180715, end: 20180715

REACTIONS (4)
  - Seizure [Recovered/Resolved]
  - Product dose omission [Recovered/Resolved]
  - Product administration error [Recovered/Resolved]
  - Wrong product administered [Recovered/Resolved]

NARRATIVE: CASE EVENT DATE: 20180715
